FAERS Safety Report 5573196-6 (Version None)
Quarter: 2007Q4

REPORT INFORMATION
  Report Type: 
  Country: None (occurrence: None)
  Receive Date: 20071224
  Receipt Date: 20071217
  Transmission Date: 20080405
  Serious: Yes (Other)
  Sender: FDA-Public Use
  Company Number: KR-SANOFI-SYNTHELABO-A01200714215

PATIENT
  Age: 70 Year
  Sex: Male

DRUGS (1)
  1. STILNOX [Suspect]
     Indication: DRUG USE FOR UNKNOWN INDICATION
     Route: 048
     Dates: start: 20070901

REACTIONS (1)
  - DELIRIUM [None]
